FAERS Safety Report 7682023-2 (Version None)
Quarter: 2011Q3

REPORT INFORMATION
  Report Type: 
  Country: None (occurrence: None)
  Receive Date: 20110809
  Receipt Date: 20110726
  Transmission Date: 20111222
  Serious: Yes (Other)
  Sender: FDA-Public Use
  Company Number: B0737138A

PATIENT
  Age: 27 Year
  Sex: Female

DRUGS (4)
  1. SELEGILLINE (SELEGILLINE) (FORMULATION UNKNOWN) [Suspect]
     Indication: PARKINSONISM
  2. ROPINIROLE HYDROCHLORIDE [Suspect]
     Indication: PARKINSONISM
     Dosage: 1.5 MG / PER DAY
  3. CARBIDOPA + LEVODOPA [Suspect]
     Indication: PARKINSONISM
  4. ENTACAPONE [Suspect]
     Indication: PARKINSONISM

REACTIONS (3)
  - MATERNAL DRUGS AFFECTING FOETUS [None]
  - VENTRICULAR SEPTAL DEFECT [None]
  - PREMATURE RUPTURE OF MEMBRANES [None]
